FAERS Safety Report 10084611 (Version 2)
Quarter: 2014Q2

REPORT INFORMATION
  Report Type: Report from Study
  Country: US (occurrence: US)
  Receive Date: 20140417
  Receipt Date: 20140620
  Transmission Date: 20141212
  Serious: Yes (Death, Hospitalization)
  Sender: FDA-Public Use
  Company Number: US-BRISTOL-MYERS SQUIBB COMPANY-20602405

PATIENT
  Age: 60 Year
  Sex: Female

DRUGS (7)
  1. YERVOY [Suspect]
     Indication: MALIGNANT MELANOMA
     Dosage: 26FEB14
     Route: 042
     Dates: start: 20140205, end: 20140319
  2. KEPPRA [Concomitant]
     Dates: start: 201312, end: 20140418
  3. PERCOCET [Concomitant]
     Dosage: 1DF=5-325MG
     Dates: start: 20140214, end: 20140418
  4. PREDNISONE [Concomitant]
     Dates: start: 201312, end: 20140418
  5. SYNTHROID [Concomitant]
     Dates: start: 20140418
  6. ZOFRAN [Concomitant]
     Dates: start: 20140226, end: 20140418
  7. PROTONIX [Concomitant]
     Dates: start: 20140329, end: 20140418

REACTIONS (2)
  - Malignant neoplasm progression [Fatal]
  - Haemorrhoids [Unknown]
